FAERS Safety Report 7371596-5 (Version None)
Quarter: 2011Q1

REPORT INFORMATION
  Report Type: 
  Country: None (occurrence: None)
  Receive Date: 20110324
  Receipt Date: 20081001
  Transmission Date: 20110831
  Serious: Yes (Hospitalization, Other)
  Sender: FDA-Public Use
  Company Number: US-BAYER-201042089NA

PATIENT
  Sex: Male
  Weight: 38.095 kg

DRUGS (19)
  1. HEPARIN [Concomitant]
     Dosage: 25.000 U, UNK
     Route: 042
     Dates: start: 20030808
  2. CEFUROXIME [Concomitant]
     Dosage: 1.5 G, PRIME
     Dates: start: 20030808
  3. LIDOCAINE [Concomitant]
     Dosage: 100 MG, PRIME
     Dates: start: 20030808
  4. PROPOFOL [Concomitant]
     Dosage: 100 MG, UNK
     Route: 042
     Dates: start: 20030808, end: 20030808
  5. ADVIL LIQUI-GELS [Concomitant]
     Route: 048
  6. LASIX [Concomitant]
     Dosage: 20 MG, UNK
     Route: 048
  7. TRASYLOL [Suspect]
     Indication: SURGERY
     Dosage: 1 ML, INITIAL (TEST) DOSE
     Route: 042
     Dates: start: 20030808, end: 20030808
  8. PROTAMINE SULFATE [Concomitant]
     Dosage: 400 MG, UNK
     Route: 042
     Dates: start: 20030808
  9. VERSED [Concomitant]
     Dosage: 2.5 MG, UNK
     Route: 042
     Dates: start: 20030808, end: 20030808
  10. MAGNESIUM SULFATE [Concomitant]
     Dosage: 2 G, PRIME
     Dates: start: 20030808
  11. TRASYLOL [Suspect]
     Indication: MITRAL VALVE REPAIR
     Dosage: 1 MILLION UNITS PRIME; INFUSION 25 ML/HR
     Route: 042
     Dates: start: 20030808, end: 20030808
  12. LISINOPRIL [Concomitant]
     Dosage: 20 MG, BID
     Route: 048
  13. HEPARIN [Concomitant]
     Dosage: 5 ML, PRIME
     Dates: start: 20030808
  14. ESMOLOL [Concomitant]
     Dosage: 100 MG, UNK
     Route: 042
     Dates: start: 20030808
  15. MANNITOL [Concomitant]
     Dosage: 25 G, PRIME
     Dates: start: 20030808
  16. LEVOPHED [Concomitant]
     Indication: BLOOD PRESSURE MANAGEMENT
     Dosage: 45/42/32/30
     Route: 042
     Dates: start: 20030808
  17. POTASSIUM CHLORIDE [Concomitant]
     Dosage: 20 MEQ, UNK
     Route: 048
  18. IBUPROFEN [Concomitant]
     Route: 048
  19. MILRINONE [Concomitant]
     Dosage: UNK
     Route: 042
     Dates: start: 20030808

REACTIONS (5)
  - CEREBROVASCULAR ACCIDENT [None]
  - PAIN [None]
  - ANXIETY [None]
  - EMOTIONAL DISTRESS [None]
  - INJURY [None]
